FAERS Safety Report 16137750 (Version 3)
Quarter: 2019Q2

REPORT INFORMATION
  Report Type: Spontaneous
  Country: US (occurrence: US)
  Receive Date: 20190330
  Receipt Date: 20190410
  Transmission Date: 20190711
  Serious: Yes (Other)
  Sender: FDA-Public Use
  Company Number: US-ROCHE-2275415

PATIENT
  Sex: Female
  Weight: 59 kg

DRUGS (4)
  1. CELLCEPT [Suspect]
     Active Substance: MYCOPHENOLATE MOFETIL\MYCOPHENOLATE MOFETIL HYDROCHLORIDE
     Indication: ANTINEUTROPHIL CYTOPLASMIC ANTIBODY
     Dosage: 750 MG IN THE MORNING AND 750 MG IN THE EVENING
     Route: 065
  2. CELLCEPT [Suspect]
     Active Substance: MYCOPHENOLATE MOFETIL\MYCOPHENOLATE MOFETIL HYDROCHLORIDE
     Indication: GLOMERULONEPHRITIS
     Dosage: ORAL
     Route: 065
  3. CELLCEPT [Suspect]
     Active Substance: MYCOPHENOLATE MOFETIL\MYCOPHENOLATE MOFETIL HYDROCHLORIDE
     Indication: VASCULITIS
     Dosage: 1000 MG IN THE MORNING AND 1000 MG IN THE EVENING
     Route: 065
  4. OMEPRAZOLE. [Concomitant]
     Active Substance: OMEPRAZOLE

REACTIONS (7)
  - Nausea [Unknown]
  - Diarrhoea [Unknown]
  - Abdominal pain upper [Unknown]
  - Renal impairment [Unknown]
  - Heart rate increased [Unknown]
  - Intentional product use issue [Unknown]
  - Off label use [Unknown]
